FAERS Safety Report 9437026 (Version 3)
Quarter: 2013Q3

REPORT INFORMATION
  Report Type: Spontaneous
  Country: IT (occurrence: IT)
  Receive Date: 20130802
  Receipt Date: 20130911
  Transmission Date: 20140515
  Serious: Yes (Other)
  Sender: FDA-Public Use
  Company Number: IT-PFIZER INC-2013223839

PATIENT
  Age: 93 Year
  Sex: Female

DRUGS (4)
  1. TORVAST [Suspect]
     Dosage: 1 DF, DAILY
     Route: 048
     Dates: start: 20130415, end: 20130515
  2. CORDARONE [Suspect]
     Dosage: 1 DF, DAILY
     Route: 048
     Dates: start: 20130415, end: 20130515
  3. COUMADIN [Suspect]
     Dosage: 10 MILLIGRAM(S);DAILY (2 DOSE FORM DAILY)
     Route: 048
     Dates: start: 20130415, end: 20130515
  4. MICARDIS [Suspect]
     Dosage: 1 DF, 1X/DAY
     Route: 048
     Dates: start: 20130415, end: 20130515

REACTIONS (3)
  - Drug dispensed to wrong patient [Unknown]
  - Drug administration error [Recovered/Resolved]
  - Loss of consciousness [Recovering/Resolving]
